FAERS Safety Report 6712491-1 (Version None)
Quarter: 2010Q2

REPORT INFORMATION
  Report Type: 
  Country: None (occurrence: None)
  Receive Date: 20100506
  Receipt Date: 20100426
  Transmission Date: 20101027
  Serious: Yes (Hospitalization)
  Sender: FDA-Public Use
  Company Number: FR-SP-2010-00949

PATIENT
  Sex: Male

DRUGS (10)
  1. IMMUCYST [Suspect]
     Indication: BLADDER CANCER
     Route: 043
     Dates: start: 20090301, end: 20090826
  2. FORADIL [Concomitant]
     Dosage: INH.
  3. BECOTIDE (BECLOMETASONE) [Concomitant]
     Dosage: INH.
  4. DIAMICRON (GLICLAZIDE) [Concomitant]
     Route: 048
  5. PERINDOPRIL ERBUMINE [Concomitant]
     Route: 048
  6. NOCTRAN (CLORAZEPATE DIPOTASSIUM) [Concomitant]
     Route: 048
  7. FUROSEMIDE [Concomitant]
     Route: 048
  8. DILTIAZEM HCL [Concomitant]
     Route: 048
  9. INSULINE CHOAY [Concomitant]
     Route: 058
  10. ATARAX [Concomitant]
     Route: 048

REACTIONS (4)
  - BLOOD ALKALINE PHOSPHATASE INCREASED [None]
  - GAMMA-GLUTAMYLTRANSFERASE INCREASED [None]
  - METASTASES TO LIVER [None]
  - PULMONARY TUBERCULOSIS [None]
